FAERS Safety Report 7363770-9 (Version None)
Quarter: 2011Q1

REPORT INFORMATION
  Report Type: 
  Country: None (occurrence: None)
  Receive Date: 20110321
  Receipt Date: 20110211
  Transmission Date: 20110831
  Serious: Yes (Death, Hospitalization, Other)
  Sender: FDA-Public Use
  Company Number: US-BAXTER-2010BH001593

PATIENT
  Age: 74 Year
  Sex: Female

DRUGS (41)
  1. HEPARIN SODIUM INJECTION [Suspect]
     Indication: HAEMODIALYSIS
     Route: 058
     Dates: start: 20080101, end: 20080102
  2. HEPARIN SODIUM INJECTION [Suspect]
     Route: 010
     Dates: start: 20080219, end: 20080219
  3. HEPARIN SODIUM 5,000 UNITS IN DEXTROSE 5% [Suspect]
     Indication: ATRIAL FIBRILLATION
     Route: 042
     Dates: start: 20080104
  4. ASPIRIN [Concomitant]
     Indication: PRODUCT USED FOR UNKNOWN INDICATION
     Route: 048
  5. FENTANYL [Concomitant]
     Indication: PRODUCT USED FOR UNKNOWN INDICATION
     Route: 061
  6. CALCIUM CARBONATE [Concomitant]
     Indication: PRODUCT USED FOR UNKNOWN INDICATION
     Route: 065
  7. HUMULIN 70/30 [Concomitant]
     Indication: DIABETES MELLITUS
     Route: 058
  8. HEPARIN SODIUM INJECTION [Suspect]
     Route: 058
  9. HEPARIN SODIUM INJECTION [Suspect]
     Route: 010
     Dates: start: 20080205, end: 20080206
  10. HEPARIN SODIUM INJECTION [Suspect]
     Route: 010
     Dates: start: 20080216, end: 20080216
  11. METOPROLOL [Concomitant]
     Indication: PRODUCT USED FOR UNKNOWN INDICATION
     Route: 065
  12. ARANESP [Concomitant]
     Indication: PRODUCT USED FOR UNKNOWN INDICATION
     Route: 065
  13. PRAVASTATIN [Concomitant]
     Indication: PRODUCT USED FOR UNKNOWN INDICATION
     Route: 048
  14. CALCIUM CARBONATE [Concomitant]
     Route: 048
  15. HEPARIN SODIUM INJECTION [Suspect]
     Route: 058
     Dates: start: 20080116, end: 20080116
  16. HEPARIN SODIUM INJECTION [Suspect]
     Route: 058
     Dates: start: 20080129, end: 20080129
  17. HEPARIN SODIUM INJECTION [Suspect]
     Route: 058
     Dates: start: 20080514
  18. HEPARIN SODIUM INJECTION [Suspect]
     Route: 058
  19. HEPARIN SODIUM INJECTION [Suspect]
     Route: 010
     Dates: start: 20080205, end: 20080206
  20. HEPARIN SODIUM INJECTION [Suspect]
     Route: 010
     Dates: start: 20080216, end: 20080216
  21. HEPARIN SODIUM INJECTION [Suspect]
     Route: 010
     Dates: start: 20080219, end: 20080219
  22. SODIUM CHLORIDE 0.9% IN PLASTIC CONTAINER [Concomitant]
     Indication: PRODUCT USED FOR UNKNOWN INDICATION
     Route: 065
  23. FERROUS SULFATE TAB [Concomitant]
     Indication: PRODUCT USED FOR UNKNOWN INDICATION
     Route: 048
  24. HEPARIN SODIUM INJECTION [Suspect]
     Route: 058
     Dates: start: 20080407, end: 20080410
  25. HEPARIN SODIUM INJECTION [Suspect]
     Route: 010
     Dates: start: 20080212, end: 20080214
  26. HEPARIN SODIUM INJECTION [Suspect]
     Route: 058
     Dates: start: 20080407, end: 20080410
  27. HEPARIN SODIUM INJECTION [Suspect]
     Route: 058
     Dates: start: 20080514
  28. HEPARIN SODIUM INJECTION [Suspect]
     Route: 010
     Dates: start: 20080208, end: 20080208
  29. MIDODRINE HYDROCHLORIDE [Concomitant]
     Indication: PRODUCT USED FOR UNKNOWN INDICATION
     Route: 065
  30. HEPARIN SODIUM INJECTION [Suspect]
     Route: 058
     Dates: start: 20080129, end: 20080129
  31. HEPARIN SODIUM INJECTION [Suspect]
     Route: 058
     Dates: start: 20080201, end: 20080201
  32. HEPARIN SODIUM INJECTION [Suspect]
     Route: 010
     Dates: start: 20080212, end: 20080214
  33. HEPARIN SODIUM 1,000 UNITS AND SODIUM CHLORIDE 0.9% [Suspect]
     Indication: PULMONARY EMBOLISM
     Route: 042
     Dates: end: 20080104
  34. VICODIN [Concomitant]
     Indication: PRODUCT USED FOR UNKNOWN INDICATION
     Route: 048
  35. HEPARIN SODIUM INJECTION [Suspect]
     Indication: THROMBOSIS PROPHYLAXIS
     Route: 058
     Dates: start: 20080101, end: 20080102
  36. HEPARIN SODIUM INJECTION [Suspect]
     Route: 058
     Dates: start: 20080116, end: 20080116
  37. HEPARIN SODIUM INJECTION [Suspect]
     Route: 058
     Dates: start: 20080201, end: 20080201
  38. HEPARIN SODIUM INJECTION [Suspect]
     Route: 010
     Dates: start: 20080208, end: 20080208
  39. WARFARIN SODIUM [Suspect]
     Indication: PRODUCT USED FOR UNKNOWN INDICATION
     Route: 065
     Dates: start: 20080101
  40. SIMVASTATIN [Concomitant]
     Indication: PRODUCT USED FOR UNKNOWN INDICATION
     Route: 048
  41. VANCOMYCIN [Concomitant]
     Indication: PRODUCT USED FOR UNKNOWN INDICATION
     Route: 042

REACTIONS (39)
  - MASTITIS [None]
  - SEPTIC SHOCK [None]
  - EPISTAXIS [None]
  - RASH [None]
  - BREAST PAIN [None]
  - PULMONARY EMBOLISM [None]
  - GASTRIC HAEMORRHAGE [None]
  - TREPONEMA TEST POSITIVE [None]
  - TACHYCARDIA [None]
  - SEPSIS [None]
  - BRADYCARDIA [None]
  - PYREXIA [None]
  - ENTEROCOCCAL INFECTION [None]
  - MULTI-ORGAN FAILURE [None]
  - OXYGEN SATURATION DECREASED [None]
  - THROMBOCYTOPENIA [None]
  - DEVICE EXPULSION [None]
  - HYPOTENSION [None]
  - DYSPNOEA [None]
  - COAGULOPATHY [None]
  - CARDIAC ARREST [None]
  - CHEST PAIN [None]
  - HEPARIN-INDUCED THROMBOCYTOPENIA [None]
  - ANTIBIOTIC RESISTANT STAPHYLOCOCCUS TEST POSITIVE [None]
  - WOUND DEHISCENCE [None]
  - MALAISE [None]
  - ADRENAL INSUFFICIENCY [None]
  - UNRESPONSIVE TO STIMULI [None]
  - DIABETIC KETOACIDOSIS [None]
  - RESPIRATORY FAILURE [None]
  - URINARY TRACT INFECTION [None]
  - TACHYPNOEA [None]
  - HAEMATEMESIS [None]
  - HAEMOPTYSIS [None]
  - VOMITING [None]
  - ULCER [None]
  - NAUSEA [None]
  - LETHARGY [None]
  - DYSPHAGIA [None]
